FAERS Safety Report 21998327 (Version 1)
Quarter: 2023Q1

REPORT INFORMATION
  Report Type: Spontaneous
  Country: ES (occurrence: ES)
  Receive Date: 20230216
  Receipt Date: 20230216
  Transmission Date: 20230418
  Serious: Yes (Other)
  Sender: FDA-Public Use
  Company Number: ES-AEMPS-1326482

PATIENT
  Age: 80 Year
  Sex: Male

DRUGS (2)
  1. IRINOTECAN [Suspect]
     Active Substance: IRINOTECAN
     Indication: Colorectal cancer recurrent
     Dosage: 243 MILLIGRAM, CYCLICAL (243 MILLIGRAMS (135 MG/M2) 75 PERCENT OF THE TOTAL)
     Route: 042
     Dates: start: 20220220
  2. CETUXIMAB [Suspect]
     Active Substance: CETUXIMAB
     Indication: Recurrent N-ras mutation-positive colorectal carcinoma
     Dosage: 900 MILLIGRAM, CYCLICAL (5 MG/ML 900 MILLIGRAMS (500 MG/M2) AFTER 80 PERCET DOSE REDUCTION OF THE TO
     Route: 042
     Dates: start: 20220218

REACTIONS (1)
  - Palmar-plantar erythrodysaesthesia syndrome [Recovering/Resolving]

NARRATIVE: CASE EVENT DATE: 20220322
